FAERS Safety Report 4519644-1 (Version None)
Quarter: 2004Q4

REPORT INFORMATION
  Report Type: 
  Country: None (occurrence: None)
  Receive Date: 20041203
  Receipt Date: 20041118
  Transmission Date: 20050328
  Serious: Yes (Death, Hospitalization)
  Sender: FDA-Public Use
  Company Number: 2004S1003451

PATIENT
  Age: 50 Year
  Sex: Male

DRUGS (6)
  1. CLOZAPINE [Suspect]
     Indication: SCHIZOAFFECTIVE DISORDER
     Dosage: 50MG BID, ORAL
     Route: 048
     Dates: start: 20040201, end: 20041001
  2. CLOZAPINE [Suspect]
     Indication: SCHIZOAFFECTIVE DISORDER
     Dosage: 500MG HS, ORAL
     Route: 048
     Dates: start: 20040201, end: 20041001
  3. ATORVASTATIN [Concomitant]
  4. NIACIN [Concomitant]
  5. ASPIRIN [Concomitant]
  6. DARBEPOETIN ALPHA [Concomitant]

REACTIONS (4)
  - APPENDICECTOMY [None]
  - ASPIRATION [None]
  - POST PROCEDURAL COMPLICATION [None]
  - VOMITING [None]
